FAERS Safety Report 5101021-6 (Version None)
Quarter: 2006Q3

REPORT INFORMATION
  Report Type: 
  Country: None (occurrence: None)
  Receive Date: 20060731
  Receipt Date: 20060619
  Transmission Date: 20061208
  Serious: No
  Sender: FDA-Public Use
  Company Number: 2006PV015961

PATIENT
  Age: 62 Year
  Sex: Female
  Weight: 69.4003 kg

DRUGS (5)
  1. BYETTA [Suspect]
     Indication: DRUG USE FOR UNKNOWN INDICATION
     Dosage: 5 MCG;BID;SC
     Route: 058
     Dates: start: 20060613
  2. FLAGYL [Suspect]
     Indication: DRUG USE FOR UNKNOWN INDICATION
     Dosage: BID
  3. GLIPIZIDE ER [Concomitant]
  4. METFORMIN HCL [Concomitant]
  5. XENICAL [Concomitant]

REACTIONS (4)
  - FATIGUE [None]
  - FEELING JITTERY [None]
  - HANGOVER [None]
  - IRRITABILITY [None]
